FAERS Safety Report 9093630 (Version 1)
Quarter: 2013Q1

REPORT INFORMATION
  Report Type: Spontaneous
  Country: US (occurrence: None)
  Receive Date: 20130213
  Receipt Date: 20130213
  Transmission Date: 20140127
  Serious: No
  Sender: FDA-Public Use
  Company Number: None

PATIENT
  Age: 80 Year
  Sex: Female

DRUGS (1)
  1. PROLIA [Suspect]
     Dates: start: 20121109

REACTIONS (9)
  - Swelling face [None]
  - Urinary tract infection [None]
  - Herpes zoster [None]
  - Chills [None]
  - Neck pain [None]
  - Pain in extremity [None]
  - Pain in extremity [None]
  - Myalgia [None]
  - Blood pressure increased [None]
